FAERS Safety Report 5383287-0 (Version None)
Quarter: 2007Q3

REPORT INFORMATION
  Report Type: 
  Country: None (occurrence: None)
  Receive Date: 20070710
  Receipt Date: 20070628
  Transmission Date: 20080115
  Serious: Yes (Life-Threatening)
  Sender: FDA-Public Use
  Company Number: NL-PFIZER INC-2007040560

PATIENT
  Sex: Male
  Weight: 79 kg

DRUGS (2)
  1. LIPITOR [Suspect]
     Indication: HYPERCHOLESTEROLAEMIA
     Route: 048
     Dates: start: 20061001, end: 20070301
  2. METFORMIN HCL [Concomitant]
     Route: 048

REACTIONS (1)
  - PULMONARY FIBROSIS [None]
